FAERS Safety Report 21450841 (Version 1)
Quarter: 2022Q4

REPORT INFORMATION
  Report Type: Spontaneous
  Country: JP (occurrence: None)
  Receive Date: 20221013
  Receipt Date: 20221013
  Transmission Date: 20230113
  Serious: Yes (Other)
  Sender: FDA-Public Use
  Company Number: 2022A340910

PATIENT
  Age: 72 Year
  Sex: Male

DRUGS (1)
  1. IMFINZI [Suspect]
     Active Substance: DURVALUMAB
     Indication: Non-small cell lung cancer
     Dosage: NUMBER OF TIMES IMFINZI (DURVALUMAB) WAS ADMINISTERED BEFORE DISCONTINUATION: 11.
     Route: 041

REACTIONS (1)
  - Pulmonary toxicity [Unknown]
